FAERS Safety Report 10083778 (Version 1)
Quarter: 2014Q2

REPORT INFORMATION
  Report Type: Spontaneous
  Country: CA (occurrence: CA)
  Receive Date: 20140417
  Receipt Date: 20140417
  Transmission Date: 20141212
  Serious: Yes (Congenital Anomaly, Other)
  Sender: FDA-Public Use
  Company Number: CA-AMGEN-CANSP2014026934

PATIENT
  Sex: Female

DRUGS (3)
  1. ENBREL [Suspect]
     Indication: PRODUCT USED FOR UNKNOWN INDICATION
     Dosage: 50 MG, 2 TIMES/WK
     Route: 064
     Dates: start: 20120401, end: 201302
  2. LEVEMIR [Concomitant]
     Dosage: UNK
     Route: 064
     Dates: end: 20130819
  3. HUMALOG [Concomitant]
     Dosage: UNK
     Route: 064
     Dates: end: 20130819

REACTIONS (1)
  - Developmental hip dysplasia [Unknown]
